FAERS Safety Report 18876623 (Version 3)
Quarter: 2023Q2

REPORT INFORMATION
  Report Type: Spontaneous
  Country: US (occurrence: US)
  Receive Date: 20210211
  Receipt Date: 20230426
  Transmission Date: 20230722
  Serious: Yes (Hospitalization, Other)
  Sender: FDA-Public Use
  Company Number: US-GILEAD-2021-0515541

PATIENT
  Age: 55 Year
  Sex: Male
  Weight: 75.283 kg

DRUGS (70)
  1. ATRIPLA [Suspect]
     Active Substance: EFAVIRENZ\EMTRICITABINE\TENOFOVIR DISOPROXIL FUMARATE
     Indication: HIV infection
     Dosage: UNK
     Route: 048
     Dates: start: 2006
  2. ATRIPLA [Suspect]
     Active Substance: EFAVIRENZ\EMTRICITABINE\TENOFOVIR DISOPROXIL FUMARATE
     Dosage: UNK
     Route: 048
     Dates: start: 20091118, end: 20140427
  3. STRIBILD [Suspect]
     Active Substance: COBICISTAT\ELVITEGRAVIR\EMTRICITABINE\TENOFOVIR DISOPROXIL FUMARATE
     Indication: HIV infection
     Dosage: UNK
     Route: 048
     Dates: start: 2006
  4. STRIBILD [Suspect]
     Active Substance: COBICISTAT\ELVITEGRAVIR\EMTRICITABINE\TENOFOVIR DISOPROXIL FUMARATE
     Dosage: UNK
     Route: 048
     Dates: start: 20140813, end: 20190403
  5. BIKTARVY [Concomitant]
     Active Substance: BICTEGRAVIR SODIUM\EMTRICITABINE\TENOFOVIR ALAFENAMIDE FUMARATE
  6. TRIZIVIR [Concomitant]
     Active Substance: ABACAVIR SULFATE\LAMIVUDINE\ZIDOVUDINE
  7. ACETAMINOPHEN\CODEINE PHOSPHATE [Concomitant]
     Active Substance: ACETAMINOPHEN\CODEINE PHOSPHATE
  8. ALIGN [Concomitant]
     Active Substance: BIFIDOBACTERIUM LONGUM SUBSP. INFANTIS
  9. AMOXICILLIN [Concomitant]
     Active Substance: AMOXICILLIN
  10. ANDRODERM [Concomitant]
     Active Substance: TESTOSTERONE
  11. ANDROGEL [Concomitant]
     Active Substance: TESTOSTERONE
  12. ATORVASTATIN [Concomitant]
     Active Substance: ATORVASTATIN
  13. AVELOX [Concomitant]
     Active Substance: MOXIFLOXACIN HYDROCHLORIDE
  14. BACLOFEN [Concomitant]
     Active Substance: BACLOFEN
  15. BENZONATATE [Concomitant]
     Active Substance: BENZONATATE
  16. CELECOXIB [Concomitant]
     Active Substance: CELECOXIB
  17. CEPHALEXIN [Concomitant]
     Active Substance: CEPHALEXIN
  18. CHERATUSSIN AC [Concomitant]
     Active Substance: CODEINE PHOSPHATE\GUAIFENESIN
  19. CHLORHEXIDINE [Concomitant]
     Active Substance: CHLORHEXIDINE
  20. CHOLESTYRAMINE [Concomitant]
     Active Substance: CHOLESTYRAMINE
  21. CICLOPIROX [Concomitant]
     Active Substance: CICLOPIROX
  22. CYCLOBENZAPRINE [Concomitant]
     Active Substance: CYCLOBENZAPRINE
  23. BETAMETHASONE\CLOTRIMAZOLE [Concomitant]
     Active Substance: BETAMETHASONE\CLOTRIMAZOLE
  24. DIBUCAINE [Concomitant]
     Active Substance: DIBUCAINE
  25. DICLOFENAC [Concomitant]
     Active Substance: DICLOFENAC
  26. DIPHENOXYLATE [Concomitant]
     Active Substance: DIPHENOXYLATE
  27. ESOMEPRAZOLE [Concomitant]
     Active Substance: ESOMEPRAZOLE
  28. FENOFIBRATE [Concomitant]
     Active Substance: FENOFIBRATE
  29. FENOFIBRIC ACID [Concomitant]
     Active Substance: FENOFIBRIC ACID
  30. FEXOFENADINE [Concomitant]
     Active Substance: FEXOFENADINE HYDROCHLORIDE
  31. FLUCONAZOLE [Concomitant]
     Active Substance: FLUCONAZOLE
  32. FLUTICASONE [Concomitant]
     Active Substance: FLUTICASONE
  33. GUAIATUSSIN AC [Concomitant]
     Active Substance: CODEINE PHOSPHATE\GUAIFENESIN
  34. PRAMOXINE HC [Concomitant]
  35. ACETAMINOPHEN\HYDROCODONE [Concomitant]
     Active Substance: ACETAMINOPHEN\HYDROCODONE
  36. KETOCONAZOLE [Concomitant]
     Active Substance: KETOCONAZOLE
  37. IBUPROFEN [Concomitant]
     Active Substance: IBUPROFEN
  38. LEVOFLOXACIN [Concomitant]
     Active Substance: LEVOFLOXACIN
  39. LYRICA [Concomitant]
     Active Substance: PREGABALIN
  40. MELOXICAM [Concomitant]
     Active Substance: MELOXICAM
  41. MESALAMINE [Concomitant]
     Active Substance: MESALAMINE
  42. METHOCARBAMOL [Concomitant]
     Active Substance: METHOCARBAMOL
  43. METRONIDAZOLE [Concomitant]
     Active Substance: METRONIDAZOLE
  44. NEXIUM I.V. [Concomitant]
     Active Substance: ESOMEPRAZOLE SODIUM
  45. PREDNISONE [Concomitant]
     Active Substance: PREDNISONE
  46. PROAIR HFA [Concomitant]
     Active Substance: ALBUTEROL SULFATE
  47. PROCTOZONE HC [Concomitant]
     Active Substance: HYDROCORTISONE
  48. PROPOXYPHENE [Concomitant]
     Active Substance: PROPOXYPHENE
  49. ACETAMINOPHEN [Concomitant]
     Active Substance: ACETAMINOPHEN
  50. ROSUVASTATIN [Concomitant]
     Active Substance: ROSUVASTATIN
  51. SAVELLA [Concomitant]
     Active Substance: MILNACIPRAN HYDROCHLORIDE
  52. SILVER SULFADIAZINE [Concomitant]
     Active Substance: SILVER SULFADIAZINE
  53. SULFAMETHOXAZOLE\TRIMETHOPRIM [Concomitant]
     Active Substance: SULFAMETHOXAZOLE\TRIMETHOPRIM
  54. ADENOSINE [Concomitant]
     Active Substance: ADENOSINE
  55. TAMSULOSIN [Concomitant]
     Active Substance: TAMSULOSIN
  56. TRAMADOL [Concomitant]
     Active Substance: TRAMADOL
  57. TRILIPIX [Concomitant]
     Active Substance: FENOFIBRIC ACID
  58. VIRTUSSIN AC [Concomitant]
     Active Substance: CODEINE PHOSPHATE\GUAIFENESIN
  59. VASCEPA [Concomitant]
     Active Substance: ICOSAPENT ETHYL
  60. VIAGRA [Concomitant]
     Active Substance: SILDENAFIL CITRATE
  61. DICLOFENAC [Concomitant]
     Active Substance: DICLOFENAC
  62. GEMFIBROZIL [Concomitant]
     Active Substance: GEMFIBROZIL
  63. AZITHROMYCIN [Concomitant]
     Active Substance: AZITHROMYCIN
  64. CIALIS [Concomitant]
     Active Substance: TADALAFIL
  65. GEL KAM [Concomitant]
  66. HYDROCORTISONE [HYDROCORTISONE VALERATE] [Concomitant]
  67. NAPROXEN [Concomitant]
     Active Substance: NAPROXEN
  68. VALPROATE SODIUM [Concomitant]
     Active Substance: VALPROATE SODIUM
  69. DOVATO [Concomitant]
     Active Substance: DOLUTEGRAVIR SODIUM\LAMIVUDINE
  70. ESOMEPRAZOLE [Concomitant]
     Active Substance: ESOMEPRAZOLE

REACTIONS (16)
  - Acute kidney injury [Not Recovered/Not Resolved]
  - Multiple fractures [Recovered/Resolved]
  - Renal failure [Not Recovered/Not Resolved]
  - Osteoporosis [Not Recovered/Not Resolved]
  - Wrist fracture [Recovered/Resolved]
  - Radius fracture [Recovered/Resolved]
  - Fracture [Recovered/Resolved]
  - Hip fracture [Recovered/Resolved]
  - Rib fracture [Recovered/Resolved]
  - Bipolar disorder [Not Recovered/Not Resolved]
  - Emotional distress [Unknown]
  - Anhedonia [Unknown]
  - Anxiety [Unknown]
  - Pain [Unknown]
  - Hyperlipidaemia [Not Recovered/Not Resolved]
  - Depression [Unknown]

NARRATIVE: CASE EVENT DATE: 20130301
